FAERS Safety Report 5534607-5 (Version None)
Quarter: 2007Q4

REPORT INFORMATION
  Report Type: 
  Country: None (occurrence: None)
  Receive Date: 20071204
  Receipt Date: 20071204
  Transmission Date: 20080405
  Serious: Yes (Other)
  Sender: FDA-Public Use
  Company Number: None

PATIENT
  Age: 52 Year
  Sex: Female
  Weight: 117.9352 kg

DRUGS (1)
  1. GABAPENTIN [Suspect]
     Indication: RESTLESS LEGS SYNDROME
     Dosage: 600MG 3 TUNES A DAY PO
     Route: 048
     Dates: start: 20071120, end: 20071126

REACTIONS (2)
  - MUSCLE TWITCHING [None]
  - TREMOR [None]
